FAERS Safety Report 9520666 (Version 1)
Quarter: 2013Q3

REPORT INFORMATION
  Report Type: Spontaneous
  Country: IN (occurrence: IN)
  Receive Date: 20130913
  Receipt Date: 20130913
  Transmission Date: 20140515
  Serious: Yes (Death)
  Sender: FDA-Public Use
  Company Number: IN-009507513-1309IND004409

PATIENT
  Age: 22 Year
  Sex: Female

DRUGS (2)
  1. VIRAFERONPEG [Suspect]
     Dosage: 100 MICROGRAM, QW
  2. REBETOL [Suspect]
     Route: 048

REACTIONS (1)
  - Accident [Fatal]
